FAERS Safety Report 7939333-0 (Version None)
Quarter: 2011Q4

REPORT INFORMATION
  Report Type: 
  Country: None (occurrence: None)
  Receive Date: 20111125
  Receipt Date: 20111117
  Transmission Date: 20120403
  Serious: Yes (Other)
  Sender: FDA-Public Use
  Company Number: US-RB-030400-11

PATIENT
  Age: 39 Year
  Sex: Female

DRUGS (2)
  1. DELSYM ADULT GRAPE [Suspect]
     Indication: PRODUCT USED FOR UNKNOWN INDICATION
     Dosage: TOOK ONE DOSE OF DELSYM
     Route: 048
     Dates: start: 20111114
  2. IMITREX [Suspect]
     Indication: PRODUCT USED FOR UNKNOWN INDICATION
     Dates: start: 20111114

REACTIONS (4)
  - ANXIETY [None]
  - TREMOR [None]
  - SEROTONIN SYNDROME [None]
  - GASTROINTESTINAL DISORDER [None]
